FAERS Safety Report 8157042-2 (Version None)
Quarter: 2012Q1

REPORT INFORMATION
  Report Type: 
  Country: None (occurrence: None)
  Receive Date: 20120222
  Receipt Date: 20120215
  Transmission Date: 20120608
  Serious: Yes (Other)
  Sender: FDA-Public Use
  Company Number: BR-US-EMD SERONO, INC.-7113927

PATIENT
  Sex: Female

DRUGS (1)
  1. REBIF [Suspect]
     Indication: RELAPSING-REMITTING MULTIPLE SCLEROSIS
     Dates: start: 20070101

REACTIONS (7)
  - CONSTIPATION [None]
  - URINARY TRACT INFECTION [None]
  - URINARY RETENTION [None]
  - INFLUENZA LIKE ILLNESS [None]
  - NEPHROLITHIASIS [None]
  - ABDOMINAL PAIN LOWER [None]
  - GAIT DISTURBANCE [None]
